FAERS Safety Report 9260321 (Version 1)
Quarter: 2013Q2

REPORT INFORMATION
  Report Type: Report from Study
  Country: US (occurrence: US)
  Receive Date: 20130429
  Receipt Date: 20130429
  Transmission Date: 20140414
  Serious: Yes (Death)
  Sender: FDA-Public Use
  Company Number: PHEH2013US009232

PATIENT
  Age: 88 Year
  Sex: Male

DRUGS (2)
  1. TOBI [Suspect]
     Dosage: 300 MG, BID
     Dates: start: 20130125
  2. TOBI [Suspect]
     Dosage: UNK

REACTIONS (1)
  - Death [Fatal]
